FAERS Safety Report 9351433 (Version 1)
Quarter: 2013Q2

REPORT INFORMATION
  Report Type: Report from Study
  Country: DE (occurrence: DE)
  Receive Date: 20130617
  Receipt Date: 20130617
  Transmission Date: 20140414
  Serious: Yes (Hospitalization)
  Sender: FDA-Public Use
  Company Number: DE-CELGENEUS-062-21660-13044925

PATIENT
  Age: 43 Year
  Sex: Female
  Weight: 63 kg

DRUGS (5)
  1. ABRAXANE [Suspect]
     Indication: BREAST CANCER
     Route: 041
     Dates: start: 20121219
  2. HERCEPTIN [Suspect]
     Indication: BREAST CANCER
     Route: 041
     Dates: start: 20121219
  3. CYCLOPHOSPHAMIDE [Suspect]
     Indication: BREAST CANCER
     Route: 041
     Dates: start: 20130408
  4. EPIRUBICIN [Suspect]
     Indication: BREAST CANCER
     Route: 041
     Dates: start: 20130408
  5. PERTUZUMAB [Suspect]
     Indication: BREAST CANCER
     Route: 065
     Dates: start: 20121219

REACTIONS (1)
  - Sinusitis [Recovered/Resolved]
